FAERS Safety Report 18721274 (Version 2)
Quarter: 2021Q1

REPORT INFORMATION
  Report Type: Report from Study
  Country: US (occurrence: US)
  Receive Date: 20210109
  Receipt Date: 20210205
  Transmission Date: 20210419
  Serious: No
  Sender: FDA-Public Use
  Company Number: US-ACADIA PHARMACEUTICALS INC.-ACA-2020-PIM-004002

PATIENT
  Age: 85 Year
  Sex: Male

DRUGS (24)
  1. NUPLAZID [Suspect]
     Active Substance: PIMAVANSERIN TARTRATE
     Indication: HALLUCINATION
  2. LOVASTATIN. [Concomitant]
     Active Substance: LOVASTATIN
     Dosage: TAKE 1 TABLET BY EVERY DAY WITH THE EVENING MEAL
     Route: 048
  3. NUPLAZID [Suspect]
     Active Substance: PIMAVANSERIN TARTRATE
     Indication: DELUSION
  4. ARICEPT [Concomitant]
     Active Substance: DONEPEZIL HYDROCHLORIDE
     Dosage: TAKE 1 TABLET EVERY DAY IN EVENING
     Route: 048
  5. XANAX [Concomitant]
     Active Substance: ALPRAZOLAM
     Dosage: TAKE 1 TABLET 2 TIMES EVERY DAY
     Route: 048
  6. MELOXICAM. [Concomitant]
     Active Substance: MELOXICAM
  7. MEMANTINE HCL [Concomitant]
     Active Substance: MEMANTINE
  8. SYNTHROID [Concomitant]
     Active Substance: LEVOTHYROXINE SODIUM
     Dosage: TAKE 1 TABLET EVERY DAY
     Route: 048
  9. TAMSULOSIN HCL [Concomitant]
     Active Substance: TAMSULOSIN HYDROCHLORIDE
  10. FLOMAX [MORNIFLUMATE] [Concomitant]
     Active Substance: MORNIFLUMATE
     Dosage: TAKE 1 CAPSULE EVERY DAY 1/2 HOUR FOLLOWING THE SAME MEAL
     Route: 048
  11. LUGOL [Concomitant]
     Active Substance: IODINE\POTASSIUM IODIDE
  12. NUPLAZID [Suspect]
     Active Substance: PIMAVANSERIN TARTRATE
     Indication: PARKINSON^S DISEASE PSYCHOSIS
     Dosage: 34 MILLIGRAM, QD
     Route: 048
     Dates: start: 20201020, end: 20201130
  13. ISOSORBIDE MONONITRATE. [Concomitant]
     Active Substance: ISOSORBIDE MONONITRATE
     Dosage: TAKE 1 TABLET BY EVERY DAY IN MORNING
     Route: 048
  14. IRON [Concomitant]
     Active Substance: IRON
     Dosage: 325 MG (65 MG IRON) EVERY DAY
     Route: 048
  15. COZAAR [Concomitant]
     Active Substance: LOSARTAN POTASSIUM
     Dosage: TAKE 1 TABLET EVERY DAY
     Route: 048
  16. AMIODARONE HCL [Concomitant]
     Active Substance: AMIODARONE HYDROCHLORIDE
  17. MAGNESIUM OXIDE. [Concomitant]
     Active Substance: MAGNESIUM OXIDE
     Dosage: TAKE 1 TABLET BY 2 TIMES EVERY EVENING
     Route: 048
  18. PROTONIX [OMEPRAZOLE] [Concomitant]
     Active Substance: OMEPRAZOLE
     Dosage: TAKE 1 TABLET EVERY DAY
     Route: 048
  19. DICYCLOMINE HCL [Concomitant]
     Active Substance: DICYCLOMINE HYDROCHLORIDE
     Dosage: TAKE 1 CAPSULE 2 TIMES EVERY DAY
     Route: 048
  20. PLAVIX [Concomitant]
     Active Substance: CLOPIDOGREL BISULFATE
     Dosage: TAKE 1 TABLET EVERY DAY
     Route: 048
  21. NAMENDA [Concomitant]
     Active Substance: MEMANTINE HYDROCHLORIDE
     Dosage: TAKE 1 TABLET 2 TIMES EVERY DAY
     Route: 048
  22. CLOPIDOGREL BISULFATE. [Concomitant]
     Active Substance: CLOPIDOGREL BISULFATE
  23. PANTOPRAZOLE SODIUM. [Concomitant]
     Active Substance: PANTOPRAZOLE SODIUM
  24. NUPLAZID [Suspect]
     Active Substance: PIMAVANSERIN TARTRATE
     Indication: DELUSION

REACTIONS (1)
  - Gait disturbance [Recovered/Resolved]

NARRATIVE: CASE EVENT DATE: 20201026
